FAERS Safety Report 16197978 (Version 1)
Quarter: 2019Q2

REPORT INFORMATION
  Report Type: Spontaneous
  Country: US (occurrence: US)
  Receive Date: 20190412
  Receipt Date: 20190412
  Transmission Date: 20190711
  Serious: No
  Sender: FDA-Public Use
  Company Number: None

PATIENT
  Age: 42 Year
  Sex: Female
  Weight: 58.97 kg

DRUGS (5)
  1. MIRENA [Suspect]
     Active Substance: LEVONORGESTREL
     Dates: start: 20190131, end: 20190411
  2. MAGNESIUM [Concomitant]
     Active Substance: MAGNESIUM
  3. FLAXSEED [Concomitant]
     Active Substance: FLAX SEED
  4. CALCIUM [Concomitant]
     Active Substance: CALCIUM
  5. D [Concomitant]

REACTIONS (2)
  - Bacterial vaginosis [None]
  - Vaginal haemorrhage [None]

NARRATIVE: CASE EVENT DATE: 20190201
